FAERS Safety Report 8028535 (Version 4)
Quarter: 2013Q4

REPORT INFORMATION
  Report Type: Spontaneous
  Country: JP (occurrence: JP)
  Receive Date: 20110711
  Receipt Date: 20131218
  Transmission Date: 20140711
  Serious: Yes (Hospitalization)
  Sender: FDA-Public Use
  Company Number: JP-PFIZER INC-2011151779

PATIENT
  Age: 69 Year
  Sex: Male
  Weight: 55 kg

DRUGS (4)
  1. ZITHROMAC [Suspect]
     Indication: NASOPHARYNGITIS
     Dosage: UNK
     Dates: start: 2011
  2. FOSFOMYCIN [Suspect]
     Indication: NASOPHARYNGITIS
     Dosage: UNK
     Route: 041
  3. MEQUITAZINE [Suspect]
     Indication: NASOPHARYNGITIS
     Dosage: UNK
     Route: 048
  4. MAOTO [Suspect]
     Indication: NASOPHARYNGITIS
     Dosage: UNK
     Route: 048

REACTIONS (1)
  - Drug reaction with eosinophilia and systemic symptoms [Recovered/Resolved]
